FAERS Safety Report 6605223-9 (Version None)
Quarter: 2010Q1

REPORT INFORMATION
  Report Type: 
  Country: None (occurrence: None)
  Receive Date: 20100226
  Receipt Date: 20100216
  Transmission Date: 20100710
  Serious: Yes (Other)
  Sender: FDA-Public Use
  Company Number: US-PFIZER INC-2010020870

PATIENT
  Sex: Male

DRUGS (2)
  1. DILANTIN [Suspect]
     Dosage: 100 MG, UNK
  2. FLUCONAZOLE [Interacting]

REACTIONS (2)
  - DRUG INTERACTION [None]
  - DYSGEUSIA [None]
